FAERS Safety Report 7127836-0 (Version None)
Quarter: 2010Q4

REPORT INFORMATION
  Report Type: 
  Country: None (occurrence: None)
  Receive Date: 20101029
  Receipt Date: 20100628
  Transmission Date: 20110411
  Serious: Yes (Hospitalization)
  Sender: FDA-Public Use
  Company Number: US-002354

PATIENT
  Sex: Male

DRUGS (6)
  1. DEGARELIX (240 MG, 480 MG) [Suspect]
     Indication: PROSTATE CANCER
     Dosage: (240 MG 1X/MONTH SUBCUTANEOUS) (480 MG 1X/3 MONTHS SUBCUTANEOUS)
     Route: 058
     Dates: start: 20100202, end: 20100202
  2. DEGARELIX (240 MG, 480 MG) [Suspect]
     Indication: PROSTATE CANCER
     Dosage: (240 MG 1X/MONTH SUBCUTANEOUS) (480 MG 1X/3 MONTHS SUBCUTANEOUS)
     Route: 058
     Dates: start: 20100302
  3. LISINOPRIL [Concomitant]
  4. ASPIRIN [Concomitant]
  5. ZINC [Concomitant]
  6. CALCIUM [Concomitant]

REACTIONS (2)
  - RENAL FAILURE ACUTE [None]
  - SYNCOPE [None]
